FAERS Safety Report 7476888-7 (Version None)
Quarter: 2011Q2

REPORT INFORMATION
  Report Type: 
  Country: None (occurrence: None)
  Receive Date: 20110512
  Receipt Date: 20101227
  Transmission Date: 20111010
  Serious: Yes (Hospitalization, Other)
  Sender: FDA-Public Use
  Company Number: US-BAYER-201033391NA

PATIENT
  Age: 17 Year
  Sex: Female

DRUGS (18)
  1. CEFADROXIL [Concomitant]
     Dosage: 500 MG, UNK
  2. RETIN-A [Concomitant]
     Dosage: 0.025 %, UNK
  3. ADVAIR DISKUS 100/50 [Concomitant]
  4. METHYLPREDNISOLONE [Concomitant]
     Dosage: 4 MG, UNK
  5. GENTAMICIN [Concomitant]
     Dosage: 3 MG/ML, UNK
  6. ZITHROMAX [Concomitant]
     Dosage: 250 MG, UNK
  7. CLINDAMYCIN HCL [Concomitant]
  8. BIAXIN XL [Concomitant]
     Dosage: 500 MG, UNK
  9. ALLEGRA D 24 HOUR [Concomitant]
  10. PATANOL [Concomitant]
     Dosage: 0.1 %, UNK
  11. AZITHROMYCIN [Concomitant]
     Dosage: 250 MG, UNK
  12. YASMIN [Suspect]
     Indication: PRODUCT USED FOR UNKNOWN INDICATION
     Route: 048
     Dates: start: 20050301, end: 20070801
  13. SINGULAIR [Concomitant]
     Dosage: 10 MG, UNK
  14. ALBUTEROL [Concomitant]
     Dosage: 90 UNK, UNK
  15. RHINOCORT [Concomitant]
  16. MAXAIR [Concomitant]
     Dosage: 0.2 MG, UNK
  17. BACTROBAN [Concomitant]
     Dosage: 2 %, UNK
  18. CLEOCIN T [Concomitant]
     Dosage: 1 %, UNK

REACTIONS (1)
  - PULMONARY EMBOLISM [None]
